FAERS Safety Report 22229015 (Version 1)
Quarter: 2023Q2

REPORT INFORMATION
  Report Type: Spontaneous
  Country: US (occurrence: US)
  Receive Date: 20230419
  Receipt Date: 20230419
  Transmission Date: 20230722
  Serious: No
  Sender: FDA-Public Use
  Company Number: US-SCILEX PHARMACEUTICALS INC.-2022SCX00022

PATIENT
  Sex: Female

DRUGS (2)
  1. ZTLIDO [Suspect]
     Active Substance: LIDOCAINE
     Dosage: UNK
     Route: 061
  2. ZTLIDO [Suspect]
     Active Substance: LIDOCAINE
     Dosage: UNK
     Route: 061

REACTIONS (3)
  - Therapeutic product effect decreased [Unknown]
  - Product adhesion issue [Unknown]
  - Wrong technique in device usage process [Unknown]
